FAERS Safety Report 21728622 (Version 1)
Quarter: 2022Q4

REPORT INFORMATION
  Report Type: Spontaneous
  Country: JP (occurrence: JP)
  Receive Date: 20221214
  Receipt Date: 20221214
  Transmission Date: 20230113
  Serious: Yes (Hospitalization, Other)
  Sender: FDA-Public Use
  Company Number: JP-CHUGAI-2022048974

PATIENT
  Age: 79 Year
  Sex: Female

DRUGS (2)
  1. KADCYLA [Suspect]
     Active Substance: ADO-TRASTUZUMAB EMTANSINE
     Indication: Breast cancer
     Dosage: UNK
     Route: 041
  2. KADCYLA [Suspect]
     Active Substance: ADO-TRASTUZUMAB EMTANSINE
     Dosage: 3.6 MILLIGRAM/KILOGRAM, ONCE/3WEEKS
     Route: 041

REACTIONS (3)
  - Portal hypertension [Recovering/Resolving]
  - Metastases to central nervous system [Unknown]
  - Liver disorder [Recovering/Resolving]

NARRATIVE: CASE EVENT DATE: 20221118
